FAERS Safety Report 7997087-6 (Version None)
Quarter: 2011Q4

REPORT INFORMATION
  Report Type: 
  Country: None (occurrence: None)
  Receive Date: 20111212
  Receipt Date: 20111130
  Transmission Date: 20120403
  Serious: Yes (Hospitalization)
  Sender: FDA-Public Use
  Company Number: 2011030457

PATIENT
  Age: 3 Year
  Sex: Male

DRUGS (1)
  1. HIZENTRA [Suspect]
     Dosage: 4 G QD;
     Dates: start: 20111125, end: 20111125

REACTIONS (4)
  - LETHARGY [None]
  - VOMITING [None]
  - HEADACHE [None]
  - PERIPHERAL COLDNESS [None]
